FAERS Safety Report 15502029 (Version 1)
Quarter: 2018Q4

REPORT INFORMATION
  Report Type: Report from Study
  Country: US (occurrence: US)
  Receive Date: 20181015
  Receipt Date: 20181015
  Transmission Date: 20190205
  Serious: Yes (Other)
  Sender: FDA-Public Use
  Company Number: US-AMGEN-USASL2018073417

PATIENT
  Sex: Female
  Weight: 113.3 kg

DRUGS (2)
  1. CORLANOR [Suspect]
     Active Substance: IVABRADINE HYDROCHLORIDE
     Indication: SINUS TACHYCARDIA
     Dosage: 5 MG, BID
     Route: 048
  2. PROCORALAN [Suspect]
     Active Substance: IVABRADINE
     Indication: SINUS TACHYCARDIA
     Dosage: 5 MG, BID
     Route: 048

REACTIONS (7)
  - Blood test abnormal [Recovered/Resolved]
  - Nerve injury [Unknown]
  - Cardiac disorder [Unknown]
  - Vomiting [Unknown]
  - Heart rate increased [Unknown]
  - Off label use [Unknown]
  - Loss of consciousness [Unknown]
